FAERS Safety Report 17964375 (Version 2)
Quarter: 2020Q3

REPORT INFORMATION
  Report Type: Spontaneous
  Country: US (occurrence: US)
  Receive Date: 20200630
  Receipt Date: 20200729
  Transmission Date: 20201103
  Serious: Yes (Hospitalization, Other)
  Sender: FDA-Public Use
  Company Number: US-SAOL THERAPEUTICS-2020SAO00191

PATIENT
  Age: 17 Year
  Sex: Male
  Weight: 29 kg

DRUGS (5)
  1. LIORESAL [Suspect]
     Active Substance: BACLOFEN
     Indication: MUSCLE SPASTICITY
     Dosage: 844 ?G, \DAY VIA FLEX MODE
     Route: 037
     Dates: end: 20200619
  2. GI MEDICATIONS (UNSPECIFIED) [Concomitant]
  3. CARBIDOPA LEVODOPA [Concomitant]
     Active Substance: CARBIDOPA\LEVODOPA
  4. LIORESAL [Suspect]
     Active Substance: BACLOFEN
     Dosage: 500 ?G, \DAY
     Route: 037
     Dates: start: 202006
  5. LIORESAL [Suspect]
     Active Substance: BACLOFEN
     Indication: CEREBRAL PALSY
     Dosage: 400 ?G, \DAY
     Route: 037
     Dates: start: 20200619, end: 202006

REACTIONS (10)
  - Device infusion issue [Unknown]
  - Drug withdrawal syndrome [Recovering/Resolving]
  - SARS-CoV-2 antibody test positive [Recovering/Resolving]
  - Agitation [Recovering/Resolving]
  - Hypotensive crisis [Recovering/Resolving]
  - Product dose omission issue [Recovered/Resolved]
  - Acute hepatic failure [Recovering/Resolving]
  - Gastrointestinal disorder [Recovering/Resolving]
  - Cardiac disorder [Recovering/Resolving]
  - Constipation [Recovering/Resolving]

NARRATIVE: CASE EVENT DATE: 202006
